FAERS Safety Report 20134202 (Version 5)
Quarter: 2021Q4

REPORT INFORMATION
  Report Type: Report from Study
  Country: NL (occurrence: NL)
  Receive Date: 20211201
  Receipt Date: 20211215
  Transmission Date: 20220303
  Serious: Yes (Hospitalization, Other)
  Sender: FDA-Public Use
  Company Number: NL-NOVARTISPH-NVSC2021NL265354

PATIENT
  Age: 56 Year
  Sex: Male
  Weight: 162 kg

DRUGS (21)
  1. ISCALIMAB [Suspect]
     Active Substance: ISCALIMAB
     Indication: Renal transplant
     Dosage: 3 MG, OTHER
     Route: 058
     Dates: start: 20190328, end: 20210827
  2. TACROLIMUS [Suspect]
     Active Substance: TACROLIMUS
     Indication: Renal transplant
     Dosage: UNK
     Route: 065
     Dates: start: 20210918
  3. TACROLIMUS [Suspect]
     Active Substance: TACROLIMUS
     Indication: Prophylaxis against transplant rejection
  4. FLUTICASONE FUROATE [Concomitant]
     Active Substance: FLUTICASONE FUROATE
     Indication: Product used for unknown indication
     Dosage: UNK
     Route: 065
     Dates: start: 20190114
  5. OXYCODONE [Concomitant]
     Active Substance: OXYCODONE
     Indication: Hypertonic bladder
     Dosage: UNK
     Route: 065
     Dates: start: 20200924
  6. OXYBUTYNIN CHLORIDE [Concomitant]
     Active Substance: OXYBUTYNIN CHLORIDE
     Indication: Hypertonic bladder
     Dosage: UNK
     Route: 065
     Dates: start: 20201222
  7. PREGABALIN [Concomitant]
     Active Substance: PREGABALIN
     Indication: Hypertonic bladder
     Dosage: UNK
     Route: 065
     Dates: start: 20201203
  8. BUMETANIDE [Concomitant]
     Active Substance: BUMETANIDE
     Indication: Bladder spasm
     Dosage: UNK
     Route: 065
     Dates: start: 20210130
  9. AMITRIPTYLINE [Concomitant]
     Active Substance: AMITRIPTYLINE
     Indication: Hypertonic bladder
     Dosage: UNK
     Route: 065
     Dates: start: 20210424
  10. LISINOPRIL [Concomitant]
     Active Substance: LISINOPRIL
     Indication: Hypertension
     Dosage: UNK
     Route: 065
     Dates: start: 20210424
  11. PRAVASTATIN [Concomitant]
     Active Substance: PRAVASTATIN
     Indication: Renal transplant
     Dosage: UNK
     Route: 065
     Dates: start: 20190508
  12. POLYETHYLENE GLYCOLS [Concomitant]
     Active Substance: POLYETHYLENE GLYCOLS
     Indication: Constipation
     Dosage: UNK
     Route: 065
     Dates: start: 20190717
  13. METFORMIN [Concomitant]
     Active Substance: METFORMIN HYDROCHLORIDE
     Indication: Hyperglycaemia
     Dosage: UNK
     Route: 065
     Dates: start: 20190717
  14. COLCHICINE [Concomitant]
     Active Substance: COLCHICINE
     Indication: Gout
     Dosage: UNK
     Route: 065
     Dates: start: 20190420
  15. INSULIN GLARGINE [Concomitant]
     Active Substance: INSULIN GLARGINE
     Indication: Type 2 diabetes mellitus
     Dosage: UNK
     Route: 065
     Dates: start: 20191019
  16. LORMETAZEPAM [Concomitant]
     Active Substance: LORMETAZEPAM
     Indication: Nerve injury
     Dosage: UNK
     Route: 065
     Dates: start: 20200121
  17. PANTOPRAZOLE [Concomitant]
     Active Substance: PANTOPRAZOLE
     Indication: Gastrooesophageal reflux disease
     Dosage: UNK
     Route: 065
     Dates: start: 20200522
  18. EMLA [Concomitant]
     Active Substance: LIDOCAINE\PRILOCAINE
     Indication: Balanoposthitis
     Dosage: UNK
     Route: 065
     Dates: start: 20200617
  19. CLOPIDOGREL [Concomitant]
     Active Substance: CLOPIDOGREL BISULFATE
     Indication: Ischaemic stroke
     Dosage: UNK
     Route: 065
     Dates: start: 20201230
  20. KETOCONAZOLE [Concomitant]
     Active Substance: KETOCONAZOLE
     Indication: Hypertonic bladder
     Dosage: UNK
     Route: 065
     Dates: start: 20200924
  21. SEMAGLUTIDE [Concomitant]
     Active Substance: SEMAGLUTIDE
     Indication: Diabetes mellitus
     Dosage: UNK
     Route: 065
     Dates: start: 20210918

REACTIONS (1)
  - COVID-19 [Recovered/Resolved]

NARRATIVE: CASE EVENT DATE: 20211029
